FAERS Safety Report 9473185 (Version 1)
Quarter: 2013Q3

REPORT INFORMATION
  Report Type: Report from Study
  Country: DE (occurrence: DE)
  Receive Date: 20130823
  Receipt Date: 20130823
  Transmission Date: 20140515
  Serious: Yes (Hospitalization)
  Sender: FDA-Public Use
  Company Number: DE-ABBOTT-13P-062-1135007-00

PATIENT
  Sex: Female

DRUGS (3)
  1. HUMIRA [Suspect]
     Indication: CROHN^S DISEASE
     Dates: start: 20130409, end: 20130618
  2. HUMIRA [Suspect]
     Dates: start: 20130811
  3. GABAPENTIN [Concomitant]
     Indication: PRODUCT USED FOR UNKNOWN INDICATION

REACTIONS (4)
  - Nerve injury [Recovering/Resolving]
  - Thrombosis [Recovering/Resolving]
  - Arthrodesis [Recovering/Resolving]
  - Abdominal discomfort [Recovering/Resolving]
